FAERS Safety Report 16768359 (Version 2)
Quarter: 2019Q3

REPORT INFORMATION
  Report Type: Report from Study
  Country: PE (occurrence: PE)
  Receive Date: 20190903
  Receipt Date: 20190918
  Transmission Date: 20191005
  Serious: Yes (Other)
  Sender: FDA-Public Use
  Company Number: PE-SA-2019SA219855

PATIENT
  Age: 90 Year
  Sex: Female

DRUGS (1)
  1. HYDROCHLOROTHIAZIDE/IRBESARTAN [Suspect]
     Active Substance: HYDROCHLOROTHIAZIDE\IRBESARTAN
     Indication: HYPERTENSION
     Dosage: 300MG/25MG, QD
     Route: 048
     Dates: start: 20150710

REACTIONS (5)
  - Cataract [Not Recovered/Not Resolved]
  - Injury corneal [Not Recovered/Not Resolved]
  - Vision blurred [Not Recovered/Not Resolved]
  - Vision blurred [Not Recovered/Not Resolved]
  - Blindness unilateral [Not Recovered/Not Resolved]

NARRATIVE: CASE EVENT DATE: 20190301
